APPROVED DRUG PRODUCT: ZOFRAN
Active Ingredient: ONDANSETRON HYDROCHLORIDE
Strength: EQ 24MG BASE **Federal Register determination that product was not discontinued or withdrawn for safety or effectiveness reasons**
Dosage Form/Route: TABLET;ORAL
Application: N020103 | Product #003
Applicant: SANDOZ INC
Approved: Aug 27, 1999 | RLD: Yes | RS: No | Type: DISCN